FAERS Safety Report 4412472-7 (Version None)
Quarter: 2004Q2

REPORT INFORMATION
  Report Type: 
  Country: None (occurrence: None)
  Receive Date: 20040630
  Receipt Date: 20040419
  Transmission Date: 20050107
  Serious: No
  Sender: FDA-Public Use
  Company Number: 04P-163-0258004-00

PATIENT
  Age: 27 Year
  Sex: Female
  Weight: 52.1637 kg

DRUGS (6)
  1. HUMIRA [Suspect]
     Indication: RHEUMATOID ARTHRITIS
     Dosage: 40 MG, 1 IN 2 WK, PER ORAL
     Route: 048
     Dates: start: 20030101
  2. METHOTREXATE [Concomitant]
  3. PREDNISOLONE ACETATE [Concomitant]
  4. CELECOXIB [Concomitant]
  5. SULFAZINE [Concomitant]
  6. MULTI-VITAMINS [Concomitant]

REACTIONS (1)
  - INJECTION SITE HAEMORRHAGE [None]
